FAERS Safety Report 25710659 (Version 2)
Quarter: 2025Q3

REPORT INFORMATION
  Report Type: Spontaneous
  Country: CN (occurrence: CN)
  Receive Date: 20250821
  Receipt Date: 20250902
  Transmission Date: 20251021
  Serious: Yes (Life-Threatening, Other)
  Sender: BAYER HEALTHCARE PHARMACEUTICALS INC.
  Company Number: CN-BAYER-2025A110869

PATIENT
  Age: 47 Year
  Sex: Female
  Weight: 60 kg

DRUGS (1)
  1. ULTRAVIST [Suspect]
     Active Substance: IOPROMIDE
     Indication: Computerised tomogram pancreas
     Route: 040
     Dates: start: 20250815, end: 20250815

REACTIONS (11)
  - Anaphylactic shock [Recovering/Resolving]
  - Contrast media allergy [Recovering/Resolving]
  - Dyspnoea [Recovered/Resolved]
  - Chills [Recovered/Resolved]
  - Pulse absent [None]
  - Blood pressure increased [Recovering/Resolving]
  - Flushing [Recovered/Resolved]
  - Ocular discomfort [Recovered/Resolved]
  - Rash erythematous [Recovered/Resolved]
  - Respiratory rate increased [None]
  - Tension [None]

NARRATIVE: CASE EVENT DATE: 20250815
